FAERS Safety Report 21145224 (Version 4)
Quarter: 2022Q4

REPORT INFORMATION
  Report Type: Report from Study
  Country: US (occurrence: US)
  Receive Date: 20220729
  Receipt Date: 20221107
  Transmission Date: 20230113
  Serious: No
  Sender: FDA-Public Use
  Company Number: US-KYOWAKIRIN-2022BKK011831

PATIENT

DRUGS (1)
  1. MOGAMULIZUMAB [Suspect]
     Active Substance: MOGAMULIZUMAB
     Indication: Product used for unknown indication
     Dosage: UNK
     Route: 042

REACTIONS (11)
  - Feeling abnormal [Unknown]
  - Hypoacusis [Unknown]
  - Ear congestion [Unknown]
  - Pain of skin [Unknown]
  - Skin exfoliation [Unknown]
  - Skin lesion [Unknown]
  - Pruritus [Unknown]
  - Erythema [Unknown]
  - Depression [Unknown]
  - Alopecia [Unknown]
  - Product dose omission issue [Unknown]
